FAERS Safety Report 24925229 (Version 1)
Quarter: 2025Q1

REPORT INFORMATION
  Report Type: Report from Study
  Country: US (occurrence: US)
  Receive Date: 20250204
  Receipt Date: 20250204
  Transmission Date: 20250409
  Serious: No
  Sender: EXELIXIS
  Company Number: US-EXELIXIS-CABO-24078256

PATIENT
  Sex: Female

DRUGS (1)
  1. CABOMETYX [Suspect]
     Active Substance: CABOZANTINIB S-MALATE
     Indication: Renal cancer
     Dosage: 20 MG, QD
     Route: 048
     Dates: start: 202305

REACTIONS (8)
  - Sinus disorder [Unknown]
  - Diarrhoea [Unknown]
  - Dry skin [Unknown]
  - Pruritus [Unknown]
  - Nausea [Unknown]
  - Burning sensation [Unknown]
  - Nasal discomfort [Unknown]
  - Blister [Unknown]
